FAERS Safety Report 15760245 (Version 10)
Quarter: 2020Q4

REPORT INFORMATION
  Report Type: Report from Study
  Country: US (occurrence: US)
  Receive Date: 20181226
  Receipt Date: 20201001
  Transmission Date: 20210113
  Serious: Yes (Hospitalization, Other)
  Sender: FDA-Public Use
  Company Number: US-BRISTOL-MYERS SQUIBB COMPANY-BMS-2018-120238

PATIENT
  Age: 60 Year
  Sex: Male
  Weight: 117 kg

DRUGS (18)
  1. ZOFRAN [Concomitant]
     Active Substance: ONDANSETRON HYDROCHLORIDE
     Indication: NAUSEA
     Dosage: 8 MILLIGRAM, TID, AS NEEDED
     Route: 048
     Dates: start: 20180612, end: 20190404
  2. OXYCODONE [Concomitant]
     Active Substance: OXYCODONE
     Dosage: 10 MILLIGRAM, Q4H, AS NEEDED
     Route: 048
     Dates: start: 20190105, end: 20190118
  3. PROTONIX [Concomitant]
     Active Substance: PANTOPRAZOLE SODIUM
     Indication: GASTROOESOPHAGEAL REFLUX DISEASE
     Dosage: 40 MILLIGRAM, BID
     Route: 048
     Dates: start: 20181221, end: 20190103
  4. POLYETHYLENE GLYCOL 3350. [Concomitant]
     Active Substance: POLYETHYLENE GLYCOL 3350
     Indication: PRODUCT USED FOR UNKNOWN INDICATION
     Route: 065
  5. CREON [Concomitant]
     Active Substance: PANCRELIPASE AMYLASE\PANCRELIPASE LIPASE\PANCRELIPASE PROTEASE
     Dosage: 36000 UNIT, QD
     Route: 048
  6. LANTUS [Concomitant]
     Active Substance: INSULIN GLARGINE
     Indication: DIABETES MELLITUS
     Dosage: 24 UNIT, QD
     Route: 058
  7. ENOXAPARIN [Concomitant]
     Active Substance: ENOXAPARIN
     Indication: THROMBOSIS PROPHYLAXIS
     Dosage: 120 MILLIGRAM, BID
     Route: 058
     Dates: start: 20181221
  8. NOVOLOG [Concomitant]
     Active Substance: INSULIN ASPART
     Indication: DIABETES MELLITUS
     Dosage: 1 DOSAGE FORM, TID, PRN
     Route: 065
  9. PACLITAXEL ALBUMIN [Suspect]
     Active Substance: PACLITAXEL
     Indication: PANCREATIC CARCINOMA METASTATIC
     Dosage: 125 MG/M2, 3 MONTHLY
     Route: 042
     Dates: start: 20181212, end: 20190129
  10. NIVOLUMAB [Suspect]
     Active Substance: NIVOLUMAB
     Indication: PANCREATIC CARCINOMA METASTATIC
     Dosage: 240 MG, 2X MONTHLY
     Route: 042
     Dates: start: 20181212, end: 20190129
  11. MIRALAX [Concomitant]
     Active Substance: POLYETHYLENE GLYCOL 3350
     Indication: CONSTIPATION
     Dosage: 1 DOSAGE FORM, QD, AS NEED
     Route: 048
     Dates: start: 20180612
  12. OXYCODONE [Concomitant]
     Active Substance: OXYCODONE
     Indication: PAIN
     Dosage: 10 MILLIGRAM, Q4H, AS NEEDED
     Route: 048
     Dates: start: 20181221, end: 20190103
  13. CREON [Concomitant]
     Active Substance: PANCRELIPASE AMYLASE\PANCRELIPASE LIPASE\PANCRELIPASE PROTEASE
     Indication: DIGESTIVE ENZYME ABNORMAL
     Dosage: 1 DOSAGE FORM, TID
     Route: 048
  14. NATEGLINIDE. [Concomitant]
     Active Substance: NATEGLINIDE
     Indication: DIABETES MELLITUS
     Dosage: 1 TAB, TID
     Route: 048
  15. GEMCITABINE HYDROCHLORIDE. [Suspect]
     Active Substance: GEMCITABINE HYDROCHLORIDE
     Indication: PANCREATIC CARCINOMA METASTATIC
     Dosage: 800 MG/M2, 3 MONTHLY
     Route: 042
     Dates: start: 20181212, end: 20190129
  16. ONDANSETRON [Concomitant]
     Active Substance: ONDANSETRON
     Indication: PRODUCT USED FOR UNKNOWN INDICATION
     Dosage: UNK
     Route: 065
  17. PANTOPRAZOLE [Concomitant]
     Active Substance: PANTOPRAZOLE
     Indication: PRODUCT USED FOR UNKNOWN INDICATION
     Dosage: UNK
     Route: 065
  18. MENTHOLATUM [CAMPHOR;MENTHOL] [Concomitant]
     Indication: PERIPHERAL SWELLING
     Dosage: 1 DOSAGE FORM, Q4H, PRN
     Route: 061

REACTIONS (6)
  - Ascites [Unknown]
  - Staphylococcal infection [Recovered/Resolved]
  - Metastases to peritoneum [Unknown]
  - Upper gastrointestinal haemorrhage [Not Recovered/Not Resolved]
  - Splenic infarction [Unknown]
  - Thrombocytopenia [Unknown]

NARRATIVE: CASE EVENT DATE: 20181216
